FAERS Safety Report 5150588-0 (Version None)
Quarter: 2006Q4

REPORT INFORMATION
  Report Type: 
  Country: None (occurrence: None)
  Receive Date: 20061114
  Receipt Date: 20061109
  Transmission Date: 20070319
  Serious: Yes (Other)
  Sender: FDA-Public Use
  Company Number: AU-BRISTOL-MYERS SQUIBB COMPANY-13572623

PATIENT
  Age: 89 Year
  Sex: Female
  Weight: 60 kg

DRUGS (8)
  1. PRAVACHOL [Suspect]
     Route: 048
     Dates: start: 20050917, end: 20050917
  2. NORVASC [Suspect]
     Indication: ANGINA PECTORIS
     Route: 048
     Dates: start: 20050912, end: 20050920
  3. COVERSYL PLUS [Suspect]
     Indication: ESSENTIAL HYPERTENSION
     Route: 048
     Dates: start: 20050912, end: 20050917
  4. CIPRO [Suspect]
     Indication: URINARY TRACT INFECTION
     Route: 048
     Dates: start: 20050917, end: 20050920
  5. BETALOC [Concomitant]
     Indication: ESSENTIAL HYPERTENSION
  6. GLYCERYL TRINITRATE [Concomitant]
     Indication: ANGINA PECTORIS
  7. CARTIA XT [Concomitant]
     Indication: CEREBROVASCULAR DISORDER
  8. CLOPIDOGREL BISULFATE [Concomitant]

REACTIONS (6)
  - CONFUSIONAL STATE [None]
  - DIPLOPIA [None]
  - EYE PAIN [None]
  - HYPONATRAEMIA [None]
  - THERAPY REGIMEN CHANGED [None]
  - VISION BLURRED [None]
